FAERS Safety Report 7488956-4 (Version None)
Quarter: 2011Q2

REPORT INFORMATION
  Report Type: 
  Country: None (occurrence: None)
  Receive Date: 20110518
  Receipt Date: 20101028
  Transmission Date: 20111010
  Serious: Yes (Other)
  Sender: FDA-Public Use
  Company Number: US-BAXTER-2010BH024201

PATIENT
  Age: 22 Year
  Sex: Female

DRUGS (2)
  1. CHLORHEXIDINE GLUCONATE [Suspect]
     Indication: PRODUCT USED FOR UNKNOWN INDICATION
     Route: 055
  2. FORANE [Suspect]
     Indication: OCCUPATIONAL EXPOSURE TO DRUG
     Route: 055

REACTIONS (2)
  - OCCUPATIONAL EXPOSURE TO DRUG [None]
  - HYPERSENSITIVITY [None]
